FAERS Safety Report 5210582-8 (Version None)
Quarter: 2007Q1

REPORT INFORMATION
  Report Type: 
  Country: None (occurrence: None)
  Receive Date: 20070117
  Receipt Date: 20070108
  Transmission Date: 20070707
  Serious: Yes (Other)
  Sender: FDA-Public Use
  Company Number: US-ROCHE-476286

PATIENT
  Age: 83 Year
  Sex: Female
  Weight: 78.9 kg

DRUGS (5)
  1. BONIVA [Suspect]
     Indication: DRUG USE FOR UNKNOWN INDICATION
     Route: 042
  2. HYDROCHLOROTHIAZIDE [Concomitant]
     Dosage: STRENGTH REPORTED AS 25.
     Route: 048
  3. ALPRAZOLAM [Concomitant]
     Dosage: STRENGTH REPORTED AS 0.25.
     Route: 048
  4. OMEPRAZOLE [Concomitant]
     Dosage: STRENGTH REPORTED AS 20.
     Route: 048
  5. TRIAMCINOLONE/UREA [Concomitant]
     Route: 048

REACTIONS (1)
  - PSORIASIS [None]
